FAERS Safety Report 18357136 (Version 2)
Quarter: 2020Q4

REPORT INFORMATION
  Report Type: Spontaneous
  Country: NL (occurrence: NL)
  Receive Date: 20201008
  Receipt Date: 20201020
  Transmission Date: 20210114
  Serious: Yes (Death, Hospitalization, Other)
  Sender: FDA-Public Use
  Company Number: NL-AUROBINDO-AUR-APL-2020-050333

PATIENT

DRUGS (2)
  1. METFORMIN [Suspect]
     Active Substance: METFORMIN HYDROCHLORIDE
     Indication: PRODUCT USED FOR UNKNOWN INDICATION
     Dosage: UNK
     Route: 065
  2. NOREPINEPHRINE. [Concomitant]
     Active Substance: NOREPINEPHRINE
     Indication: SEPTIC SHOCK
     Dosage: 0.44 MICROGRAM/KG/MIN
     Route: 065

REACTIONS (14)
  - Lactic acidosis [Unknown]
  - Hepatic failure [Unknown]
  - Metabolic acidosis [Unknown]
  - Vomiting [Unknown]
  - Renal tubular necrosis [Unknown]
  - Diarrhoea haemorrhagic [Unknown]
  - Abdominal pain [Unknown]
  - Acute kidney injury [Unknown]
  - Multiple organ dysfunction syndrome [Fatal]
  - Anuria [Unknown]
  - Necrosis ischaemic [Unknown]
  - Toxicity to various agents [Unknown]
  - Nausea [Unknown]
  - Hepatic steatosis [Unknown]
